FAERS Safety Report 5791493-6 (Version None)
Quarter: 2008Q2

REPORT INFORMATION
  Report Type: 
  Country: None (occurrence: None)
  Receive Date: 20080626
  Receipt Date: 20080305
  Transmission Date: 20081010
  Serious: No
  Sender: FDA-Public Use
  Company Number: A0713453A

PATIENT
  Age: 41 Year
  Sex: Female

DRUGS (2)
  1. ALLI [Suspect]
     Dates: start: 20080205
  2. FIBERCHOICE CHEWABLE TABLETS [Suspect]
     Route: 048

REACTIONS (2)
  - CONSTIPATION [None]
  - FLATULENCE [None]
